FAERS Safety Report 15268289 (Version 1)
Quarter: 2018Q3

REPORT INFORMATION
  Report Type: Spontaneous
  Country: US (occurrence: US)
  Receive Date: 20180726
  Receipt Date: 20180726
  Transmission Date: 20181010
  Serious: Yes (Other)
  Sender: FDA-Public Use
  Company Number: None

PATIENT
  Age: 27 Year
  Sex: Female
  Weight: 112.5 kg

DRUGS (1)
  1. DULOXETINE. [Suspect]
     Active Substance: DULOXETINE

REACTIONS (4)
  - Insomnia [None]
  - Paraesthesia [None]
  - Mania [None]
  - Heart rate irregular [None]

NARRATIVE: CASE EVENT DATE: 20180711
